FAERS Safety Report 12373750 (Version 2)
Quarter: 2016Q2

REPORT INFORMATION
  Report Type: Spontaneous
  Country: US (occurrence: US)
  Receive Date: 20160517
  Receipt Date: 20160615
  Transmission Date: 20160815
  Serious: Yes (Hospitalization, Other)
  Sender: FDA-Public Use
  Company Number: US-ASTRAZENECA-2016SE49735

PATIENT
  Age: 15834 Day
  Sex: Male
  Weight: 53.9 kg

DRUGS (11)
  1. BYDUREON [Suspect]
     Active Substance: EXENATIDE
     Indication: DIABETES MELLITUS
     Route: 058
     Dates: start: 20160321, end: 20160414
  2. METFORMIN [Concomitant]
     Active Substance: METFORMIN HYDROCHLORIDE
     Indication: DIABETES MELLITUS
     Route: 048
  3. GE TEST STRIPS [Concomitant]
  4. TERBINAFINE. [Concomitant]
     Active Substance: TERBINAFINE
     Dosage: 2 TIMES FOR 5 WEEKS
     Route: 061
  5. LISINOPRIL. [Suspect]
     Active Substance: LISINOPRIL
     Route: 048
  6. GLUCOTROL XL [Concomitant]
     Active Substance: GLIPIZIDE
     Indication: DIABETES MELLITUS
     Route: 048
  7. CRESTOR [Suspect]
     Active Substance: ROSUVASTATIN CALCIUM
     Route: 048
  8. JANUMET [Concomitant]
     Active Substance: METFORMIN HYDROCHLORIDE\SITAGLIPTIN PHOSPHATE
     Indication: DIABETES MELLITUS
     Route: 048
  9. EPIPEN [Concomitant]
     Active Substance: EPINEPHRINE
     Indication: HYPERSENSITIVITY
     Dosage: AS REQUIRED
  10. SYSTANE (HYPROMELLOSE 2910 (4000 MPA.S)) [Concomitant]
     Active Substance: HYPROMELLOSE 2910 (4000 MPA.S)
     Dosage: 0.4 %-0.3% - 1-2 DROPS TO EACH EYE EVERY 1-2 HOURS AS NEEDED
  11. INVOKANA [Concomitant]
     Active Substance: CANAGLIFLOZIN

REACTIONS (12)
  - Rash generalised [Recovered/Resolved]
  - Injection site reaction [Unknown]
  - Hypersensitivity [Recovered/Resolved]
  - Dyspnoea [Recovering/Resolving]
  - Throat irritation [Unknown]
  - Pain [Unknown]
  - Diabetes mellitus inadequate control [Not Recovered/Not Resolved]
  - Feeling abnormal [Unknown]
  - Swelling [Recovering/Resolving]
  - Nasal congestion [Unknown]
  - Erythema [Unknown]
  - Headache [Unknown]

NARRATIVE: CASE EVENT DATE: 20160321
